FAERS Safety Report 4990308-3 (Version None)
Quarter: 2006Q2

REPORT INFORMATION
  Report Type: 
  Country: None (occurrence: None)
  Receive Date: 20060427
  Receipt Date: 20060414
  Transmission Date: 20061013
  Serious: Yes (Hospitalization)
  Sender: FDA-Public Use
  Company Number: 224130

PATIENT
  Age: 73 Year
  Sex: Male
  Weight: 67 kg

DRUGS (5)
  1. MABTHERA(RITUXIMAB) CONC FOR SOLUTION FOR INFUSION [Suspect]
     Indication: B-CELL LYMPHOMA
  2. PREDNISONE TAB [Suspect]
     Indication: B-CELL LYMPHOMA
     Dosage: 70 MG, ORAL
     Route: 048
     Dates: start: 20060222, end: 20060222
  3. CYCLOPHOSPHAMIDE [Suspect]
     Indication: B-CELL LYMPHOMA
     Dosage: 1300 MG, INTRAVENOUS
     Route: 042
     Dates: start: 20060222, end: 20060222
  4. VINCRISTINE [Suspect]
     Indication: B-CELL LYMPHOMA
     Dosage: 2 MG, INTRAVENOUS
     Route: 042
     Dates: start: 20060222, end: 20060222
  5. ALLOPURINOL [Concomitant]

REACTIONS (5)
  - BLOOD CREATININE INCREASED [None]
  - NEPHROPATHY TOXIC [None]
  - PAIN IN EXTREMITY [None]
  - RENAL CYST [None]
  - RENAL DISORDER [None]
